FAERS Safety Report 7145130-9 (Version None)
Quarter: 2010Q4

REPORT INFORMATION
  Report Type: 
  Country: None (occurrence: None)
  Receive Date: 20101208
  Receipt Date: 20101201
  Transmission Date: 20110411
  Serious: Yes (Other)
  Sender: FDA-Public Use
  Company Number: US-BAYER-2010-002100

PATIENT
  Sex: Female

DRUGS (2)
  1. YASMIN [Suspect]
     Dosage: UNK
     Route: 048
     Dates: start: 20020801
  2. YASMIN [Suspect]
     Dosage: UNK
     Dates: start: 20020801

REACTIONS (2)
  - GALLBLADDER DISORDER [None]
  - GALLBLADDER PAIN [None]
